FAERS Safety Report 8335926-X (Version None)
Quarter: 2012Q2

REPORT INFORMATION
  Report Type: 
  Country: None (occurrence: None)
  Receive Date: 20120501
  Receipt Date: 20120501
  Transmission Date: 20120825
  Serious: Yes (Life-Threatening, Hospitalization)
  Sender: FDA-Public Use
  Company Number: None

PATIENT
  Age: 62 Year
  Sex: Male
  Weight: 85.3 kg

DRUGS (1)
  1. WARFARIN SODIUM [Suspect]
     Indication: DEEP VEIN THROMBOSIS
     Dosage: MG EVERY DAY PO
     Route: 048
     Dates: start: 20111122, end: 20120323

REACTIONS (5)
  - HAEMOPTYSIS [None]
  - CATHETER SITE HAEMORRHAGE [None]
  - DECREASED APPETITE [None]
  - HAEMATURIA [None]
  - RADIATION SKIN INJURY [None]
